FAERS Safety Report 6703455-2 (Version None)
Quarter: 2010Q2

REPORT INFORMATION
  Report Type: 
  Country: None (occurrence: None)
  Receive Date: 20100430
  Receipt Date: 20100421
  Transmission Date: 20101027
  Serious: Yes (Hospitalization, Other)
  Sender: FDA-Public Use
  Company Number: ES-JNJFOC-20100406263

PATIENT
  Age: 79 Year
  Sex: Male

DRUGS (9)
  1. REMICADE [Suspect]
     Indication: KERATITIS
     Route: 042
  2. REMICADE [Suspect]
     Route: 042
  3. REMICADE [Suspect]
     Route: 042
  4. METHOTREXATE [Concomitant]
  5. ACFOL [Concomitant]
  6. PREDNISONE [Concomitant]
  7. VIBRAMYCIN [Concomitant]
  8. EMCONCOR [Concomitant]
     Indication: HYPERTENSION
  9. CORTICOSTEROIDS [Concomitant]

REACTIONS (2)
  - DEEP VEIN THROMBOSIS [None]
  - PULMONARY EMBOLISM [None]
